FAERS Safety Report 8604675-2 (Version None)
Quarter: 2012Q3

REPORT INFORMATION
  Report Type: 
  Country: None (occurrence: None)
  Receive Date: 20120820
  Receipt Date: 20120814
  Transmission Date: 20120928
  Serious: Yes (Hospitalization, Other)
  Sender: FDA-Public Use
  Company Number: PHHY2012TW068692

PATIENT
  Sex: Female

DRUGS (7)
  1. ZOLEDRONOC ACID [Suspect]
     Indication: OSTEOPOROSIS POSTMENOPAUSAL
     Dosage: 5 MG PER 100 ML (100 CC)
     Route: 042
     Dates: start: 20120716, end: 20120716
  2. STROCAIN [Suspect]
     Indication: PEPTIC ULCER
     Dosage: UNK UKN, UNK
     Route: 048
     Dates: start: 20120716
  3. CINNARIZINE [Concomitant]
     Dosage: 1 DF, BID
  4. XANAX [Concomitant]
     Indication: ANXIETY
     Dosage: 0.5 MG, BID
     Route: 048
     Dates: start: 20120614
  5. VOLTAREN [Suspect]
     Indication: INFLUENZA LIKE ILLNESS
     Dosage: UNK UKN, UNK
     Route: 048
  6. FAMOTIDINE [Concomitant]
     Indication: PEPTIC ULCER
     Dosage: 20 MG, QD (1 TIME PER DAY)
     Route: 048
     Dates: start: 20120712
  7. TAPAL [Concomitant]
     Indication: CEREBROVASCULAR ACCIDENT
     Dosage: 50 MG, ONE TIME PER DAY
     Route: 048
     Dates: start: 20120614

REACTIONS (12)
  - HEARING IMPAIRED [None]
  - SUDDEN HEARING LOSS [None]
  - MALAISE [None]
  - DEAFNESS [None]
  - TINNITUS [None]
  - ABDOMINAL PAIN UPPER [None]
  - HEADACHE [None]
  - VISUAL IMPAIRMENT [None]
  - INFLAMMATION [None]
  - DEAFNESS NEUROSENSORY [None]
  - VISION BLURRED [None]
  - PYREXIA [None]
